FAERS Safety Report 5899079-X (Version None)
Quarter: 2008Q3

REPORT INFORMATION
  Report Type: 
  Country: None (occurrence: None)
  Receive Date: 20080925
  Receipt Date: 20080919
  Transmission Date: 20090109
  Serious: Yes (Hospitalization)
  Sender: FDA-Public Use
  Company Number: IT-ABBOTT-08P-083-0477304-00

PATIENT
  Age: 46 Year
  Sex: Female

DRUGS (1)
  1. LIMPIDEX [Suspect]
     Indication: VOMITING
     Route: 065

REACTIONS (2)
  - HYPOKALAEMIA [None]
  - RHABDOMYOLYSIS [None]
